FAERS Safety Report 4722339-2 (Version None)
Quarter: 2005Q3

REPORT INFORMATION
  Report Type: 
  Country: None (occurrence: None)
  Receive Date: 20050722
  Receipt Date: 20050228
  Transmission Date: 20060218
  Serious: No
  Sender: FDA-Public Use
  Company Number: US-GLAXOSMITHKLINE-A0547598A

PATIENT
  Age: 68 Year
  Sex: Female

DRUGS (5)
  1. AVANDIA [Suspect]
     Dosage: 4MG PER DAY
     Route: 048
     Dates: end: 20050101
  2. METFORMIN [Concomitant]
  3. ATENOLOL [Concomitant]
  4. LISINOPRIL [Concomitant]
  5. COZAAR [Concomitant]

REACTIONS (7)
  - BRONCHITIS [None]
  - COUGH [None]
  - EAR PAIN [None]
  - HEADACHE [None]
  - OEDEMA [None]
  - SINUSITIS [None]
  - WEIGHT INCREASED [None]
